FAERS Safety Report 4390581-9 (Version None)
Quarter: 2004Q2

REPORT INFORMATION
  Report Type: 
  Country: None (occurrence: None)
  Receive Date: 20040630
  Receipt Date: 20040616
  Transmission Date: 20050107
  Serious: Yes (Life-Threatening)
  Sender: FDA-Public Use
  Company Number: 200410408BNE

PATIENT
  Age: 81 Year
  Sex: Male

DRUGS (6)
  1. CIPROFLOXACIN [Suspect]
     Indication: SKIN ULCER
     Dosage: 500 MG, BID, ORAL
     Route: 048
     Dates: start: 20040603, end: 20040605
  2. ADALAT [Concomitant]
  3. LOSARTAN POTASSIUM [Concomitant]
  4. CLOPIDOGREL [Concomitant]
  5. ASPIRIN [Concomitant]
  6. DIGOXIN [Concomitant]

REACTIONS (1)
  - VENTRICULAR FIBRILLATION [None]
